FAERS Safety Report 21231841 (Version 3)
Quarter: 2022Q3

REPORT INFORMATION
  Report Type: Report from Study
  Country: PH (occurrence: PH)
  Receive Date: 20220819
  Receipt Date: 20220926
  Transmission Date: 20221027
  Serious: Yes (Death, Hospitalization, Other)
  Sender: FDA-Public Use
  Company Number: PH-JNJFOC-20220826695

PATIENT
  Sex: Male

DRUGS (2)
  1. BORTEZOMIB [Suspect]
     Active Substance: BORTEZOMIB
     Indication: Amyloidosis
     Dosage: 3.5 MILLIGRAM, 1/WEEK
     Route: 065
  2. BORTEZOMIB [Suspect]
     Active Substance: BORTEZOMIB
     Dosage: 3.5 MILLIGRAM, 1/WEEK
     Route: 065

REACTIONS (7)
  - Weight decreased [Unknown]
  - Intensive care [Unknown]
  - Cardiac arrest [Fatal]
  - Emergency care [Unknown]
  - Adverse event [Unknown]
  - Drug intolerance [Unknown]
  - Off label use [Unknown]
